FAERS Safety Report 6098938-5 (Version None)
Quarter: 2009Q1

REPORT INFORMATION
  Report Type: 
  Country: None (occurrence: None)
  Receive Date: 20090302
  Receipt Date: 20090217
  Transmission Date: 20090719
  Serious: Yes (Other)
  Sender: FDA-Public Use
  Company Number: FR-MERCK-0806FRA00075

PATIENT
  Age: 47 Year
  Sex: Female

DRUGS (7)
  1. ISENTRESS [Suspect]
     Indication: HIV INFECTION
     Route: 048
     Dates: start: 20080326, end: 20080527
  2. ISENTRESS [Suspect]
     Route: 048
     Dates: start: 20080701
  3. APTIVUS [Suspect]
     Indication: HIV INFECTION
     Route: 048
     Dates: start: 20080130, end: 20080527
  4. NORVIR [Suspect]
     Indication: HIV INFECTION
     Route: 048
     Dates: start: 20080130, end: 20080527
  5. TRUVADA [Concomitant]
     Indication: HIV INFECTION
     Route: 048
     Dates: start: 20080130, end: 20080527
  6. TRUVADA [Concomitant]
     Route: 048
     Dates: start: 20080701
  7. FUZEON [Concomitant]
     Indication: HIV INFECTION
     Route: 058
     Dates: start: 20080130, end: 20080526

REACTIONS (2)
  - CHOLESTASIS [None]
  - CYTOLYTIC HEPATITIS [None]
